FAERS Safety Report 9524815 (Version 1)
Quarter: 2013Q1

REPORT INFORMATION
  Report Type: Spontaneous
  Country: US (occurrence: None)
  Receive Date: 20130305
  Receipt Date: 20130305
  Transmission Date: 20140127
  Serious: Yes (Other)
  Sender: FDA-Public Use
  Company Number: 163-21880-12023171

PATIENT
  Age: 71 Year
  Sex: Male
  Weight: 94.35 kg

DRUGS (6)
  1. REVLIMID [Suspect]
     Route: 048
     Dates: start: 20110428, end: 2011
  2. ZOMETA (ZOLEDRONIC ACID) [Concomitant]
  3. DEXAMETHASONE [Concomitant]
  4. ACYCLOVIR (ACICLOVIR) [Concomitant]
  5. COREG (CARVEDILOL) [Concomitant]
  6. PERCOCET (OXYCOCET) [Concomitant]

REACTIONS (2)
  - Thrombosis [None]
  - Pancytopenia [None]
